FAERS Safety Report 9602565 (Version 2)
Quarter: 2013Q4

REPORT INFORMATION
  Report Type: Spontaneous
  Country: US (occurrence: US)
  Receive Date: 20131007
  Receipt Date: 20131206
  Transmission Date: 20140711
  Serious: Yes (Other)
  Sender: FDA-Public Use
  Company Number: US-PFIZER INC-2013282021

PATIENT
  Age: 62 Year
  Sex: Male

DRUGS (4)
  1. SUTENT [Suspect]
     Indication: GLYCOGEN STORAGE DISORDER
     Dosage: 50 MG, CYCLIC (50 MG QD 4WKS, 2WKS OFF)
     Route: 048
     Dates: start: 20130828
  2. SUTENT [Suspect]
     Dosage: 50 MG, CYCLIC (50 MG, 1 DAILY FOR 4 WEEKS ON, 2 WEEKS OFF)
     Route: 048
     Dates: start: 20130830
  3. ZOCOR [Concomitant]
     Dosage: UNK
  4. NEXIUM [Concomitant]
     Dosage: UNK

REACTIONS (7)
  - Glossodynia [Unknown]
  - Fatigue [Unknown]
  - Throat irritation [Unknown]
  - Arthralgia [Unknown]
  - Pain in extremity [Unknown]
  - Nasal discomfort [Unknown]
  - Off label use [Unknown]
